FAERS Safety Report 15242784 (Version 1)
Quarter: 2018Q3

REPORT INFORMATION
  Report Type: Spontaneous
  Country: US (occurrence: US)
  Receive Date: 20180806
  Receipt Date: 20180806
  Transmission Date: 20181010
  Serious: No
  Sender: FDA-Public Use
  Company Number: US-ASTRAZENECA-2018SE96221

PATIENT
  Sex: Male
  Weight: 106.6 kg

DRUGS (1)
  1. FASENRA [Suspect]
     Active Substance: BENRALIZUMAB
     Indication: ASTHMA
     Dosage: EVERY FOUR WEEKS
     Route: 058
     Dates: start: 201806

REACTIONS (3)
  - Dyspnoea [Not Recovered/Not Resolved]
  - Drug effect delayed [Recovered/Resolved]
  - Wheezing [Not Recovered/Not Resolved]
